FAERS Safety Report 19585156 (Version 2)
Quarter: 2021Q3

REPORT INFORMATION
  Report Type: Spontaneous
  Country: AU (occurrence: AU)
  Receive Date: 20210720
  Receipt Date: 20210722
  Transmission Date: 20211014
  Serious: Yes (Other)
  Sender: FDA-Public Use
  Company Number: AU-GLAXOSMITHKLINE-B0096879A

PATIENT
  Age: 42 Year
  Sex: Female
  Weight: 51 kg

DRUGS (3)
  1. EPILIM [Concomitant]
     Active Substance: VALPROATE SODIUM
     Indication: PRODUCT USED FOR UNKNOWN INDICATION
     Dosage: UNK
  2. ZYBAN [Suspect]
     Active Substance: BUPROPION HYDROCHLORIDE
     Indication: TOBACCO USER
     Dosage: 150 MG, 1D
     Route: 048
     Dates: start: 20001213, end: 20001218
  3. EFEXOR [Suspect]
     Active Substance: VENLAFAXINE HYDROCHLORIDE
     Indication: DEPRESSION
     Dosage: 420 MG
     Route: 048
     Dates: start: 20000801

REACTIONS (1)
  - Serotonin syndrome [Not Recovered/Not Resolved]

NARRATIVE: CASE EVENT DATE: 20001217
